FAERS Safety Report 10662850 (Version 1)
Quarter: 2014Q4

REPORT INFORMATION
  Report Type: Spontaneous
  Country: US (occurrence: US)
  Receive Date: 20141218
  Receipt Date: 20141218
  Transmission Date: 20150529
  Serious: No
  Sender: FDA-Public Use
  Company Number: US-GALDERMA-US14000242

PATIENT
  Age: 47 Year
  Sex: Male

DRUGS (3)
  1. METROGEL [Suspect]
     Active Substance: METRONIDAZOLE
     Indication: ROSACEA
     Route: 061
     Dates: start: 2000, end: 2000
  2. LEVER SOAP [Concomitant]
     Indication: THERAPEUTIC SKIN CARE TOPICAL
     Route: 061
  3. SULFUR TYPE PRODUCT [Suspect]
     Active Substance: UNSPECIFIED INGREDIENT
     Indication: ROSACEA
     Route: 061
     Dates: start: 2000, end: 2000

REACTIONS (1)
  - Condition aggravated [Recovered/Resolved]

NARRATIVE: CASE EVENT DATE: 2000
